FAERS Safety Report 15943081 (Version 4)
Quarter: 2023Q1

REPORT INFORMATION
  Report Type: Spontaneous
  Country: US (occurrence: None)
  Receive Date: 20190210
  Receipt Date: 20230227
  Transmission Date: 20230418
  Serious: Yes (Other)
  Sender: FDA-Public Use
  Company Number: 2019SE09556

PATIENT
  Age: 19465 Day
  Sex: Female
  Weight: 91.6 kg

DRUGS (21)
  1. NEXIUM [Suspect]
     Active Substance: ESOMEPRAZOLE MAGNESIUM
     Dosage: FOR MULTIPLE AND VARIOUS YEARS.
     Route: 048
  2. NEXIUM [Suspect]
     Active Substance: ESOMEPRAZOLE MAGNESIUM
     Route: 048
     Dates: start: 20151013
  3. PROTONIX [Suspect]
     Active Substance: PANTOPRAZOLE SODIUM
     Dosage: FOR MULTIPLE AND VARIOUS YEARS.
     Route: 048
  4. PROTONIX [Suspect]
     Active Substance: PANTOPRAZOLE SODIUM
     Route: 048
     Dates: start: 20061026
  5. HUMALOG [Concomitant]
     Active Substance: INSULIN LISPRO
  6. LEVEMIR [Concomitant]
     Active Substance: INSULIN DETEMIR
  7. MELOXICAM [Concomitant]
     Active Substance: MELOXICAM
  8. FUROSEMIDE [Concomitant]
     Active Substance: FUROSEMIDE
  9. BUMEX [Concomitant]
     Active Substance: BUMETANIDE
  10. METFORMIN [Concomitant]
     Active Substance: METFORMIN HYDROCHLORIDE
  11. ACETAMINOPHEN\HYDROCODONE BITARTRATE [Concomitant]
     Active Substance: ACETAMINOPHEN\HYDROCODONE BITARTRATE
  12. COLCHICINE [Concomitant]
     Active Substance: COLCHICINE
  13. POTASSIUM CHLORIDE [Concomitant]
     Active Substance: POTASSIUM CHLORIDE
  14. XANAX [Concomitant]
     Active Substance: ALPRAZOLAM
  15. ASPIRIN [Concomitant]
     Active Substance: ASPIRIN
  16. CARVEDILOL [Concomitant]
     Active Substance: CARVEDILOL
  17. DIGOXIN [Concomitant]
     Active Substance: DIGOXIN
  18. LINZESS [Concomitant]
     Active Substance: LINACLOTIDE
  19. QUINAPRIL [Concomitant]
     Active Substance: QUINAPRIL
  20. AMOXICILLIN [Concomitant]
     Active Substance: AMOXICILLIN
  21. NITROGLYCERIN [Concomitant]
     Active Substance: NITROGLYCERIN

REACTIONS (6)
  - Chronic kidney disease [Unknown]
  - Renal failure [Unknown]
  - Renal injury [Unknown]
  - Acute kidney injury [Unknown]
  - Hyperparathyroidism secondary [Unknown]
  - Rebound acid hypersecretion [Unknown]

NARRATIVE: CASE EVENT DATE: 20150521
